FAERS Safety Report 13464250 (Version 1)
Quarter: 2017Q2

REPORT INFORMATION
  Report Type: Spontaneous
  Country: US (occurrence: US)
  Receive Date: 20170420
  Receipt Date: 20170420
  Transmission Date: 20170830
  Serious: Yes (Other)
  Sender: FDA-Public Use
  Company Number: US-ROCHE-722748

PATIENT
  Age: 22 Year
  Sex: Female
  Weight: 110 kg

DRUGS (9)
  1. ACCUTANE [Suspect]
     Active Substance: ISOTRETINOIN
     Route: 048
  2. ACCUTANE [Suspect]
     Active Substance: ISOTRETINOIN
     Indication: SCAR
     Dosage: FREQUENCY: DAILY
     Route: 048
  3. ACCUTANE [Suspect]
     Active Substance: ISOTRETINOIN
     Route: 048
  4. IBUPROFEN. [Concomitant]
     Active Substance: IBUPROFEN
     Indication: HEADACHE
  5. ZOVIA [Concomitant]
     Active Substance: ETHINYL ESTRADIOL\ETHYNODIOL DIACETATE
  6. ACCUTANE [Suspect]
     Active Substance: ISOTRETINOIN
     Route: 048
     Dates: start: 2001, end: 2002
  7. DEMULEN [Concomitant]
     Active Substance: ETHINYL ESTRADIOL\ETHYNODIOL
  8. ACCUTANE [Suspect]
     Active Substance: ISOTRETINOIN
     Dosage: FREQUENCY: DAILY (DOSE REDUCED)
     Route: 048
  9. ORTHO CYCLEN [Concomitant]
     Active Substance: ETHINYL ESTRADIOL\NORGESTIMATE

REACTIONS (7)
  - Crohn^s disease [Unknown]
  - Depression [Unknown]
  - Gastrointestinal injury [Unknown]
  - Colitis ulcerative [Unknown]
  - Anaemia [Unknown]
  - Anxiety [Unknown]
  - Inflammatory bowel disease [Unknown]

NARRATIVE: CASE EVENT DATE: 199511
